FAERS Safety Report 4973475-7 (Version None)
Quarter: 2006Q2

REPORT INFORMATION
  Report Type: 
  Country: None (occurrence: None)
  Receive Date: 20060407
  Receipt Date: 20060325
  Transmission Date: 20061013
  Serious: Yes (Hospitalization, Other)
  Sender: FDA-Public Use
  Company Number: 2006015705

PATIENT
  Age: 63 Year
  Sex: Male
  Weight: 84.369 kg

DRUGS (5)
  1. VIAGRA [Suspect]
     Indication: ERECTILE DYSFUNCTION
     Dosage: 50 MG 50 MG, ORAL
     Route: 048
     Dates: start: 20020101
  2. UROLOGICALS (UROLOGICALS) [Suspect]
     Indication: ERECTILE DYSFUNCTION
     Dosage: PARENTERAL
     Route: 051
  3. INSULIN [Concomitant]
  4. AVANDIA [Concomitant]
  5. ANTIHYPERTENSIVES [Concomitant]

REACTIONS (3)
  - DYSPNOEA [None]
  - RESPIRATORY DISORDER [None]
  - THERAPEUTIC RESPONSE INCREASED [None]
